FAERS Safety Report 10328160 (Version 2)
Quarter: 2014Q3

REPORT INFORMATION
  Report Type: Report from Study
  Country: VE (occurrence: VE)
  Receive Date: 20140721
  Receipt Date: 20140806
  Transmission Date: 20150326
  Serious: Yes (Hospitalization)
  Sender: FDA-Public Use
  Company Number: PHHY2014VE088012

PATIENT
  Age: 77 Year
  Sex: Male

DRUGS (17)
  1. FOLIC ACID. [Concomitant]
     Active Substance: FOLIC ACID
     Dosage: UNK
     Route: 048
     Dates: start: 201405
  2. BENICAR [Concomitant]
     Active Substance: OLMESARTAN MEDOXOMIL
     Indication: HYPERTENSION
     Dosage: 20 MG, DAILY (SINCE LONG TIME AGO)
     Route: 048
  3. CLOPIDOGREL PLUS [Concomitant]
     Indication: ANTICOAGULANT THERAPY
     Dosage: UNK
     Route: 048
  4. LANTUS [Concomitant]
     Active Substance: INSULIN GLARGINE
     Indication: DIABETES MELLITUS
     Dosage: UNK, BID, TWICE DAILY
  5. AIRON [Concomitant]
     Indication: ASTHMA
     Dosage: 10 MG, AT NIGHT
     Dates: start: 20140324
  6. LEXOTANIL [Concomitant]
     Active Substance: BROMAZEPAM
     Indication: SLEEP DISORDER
     Dosage: UNK (3 OR 6 MG, SINCE MORE 50 YEARS AGO)
     Route: 048
  7. FERRONOM [Concomitant]
     Indication: HAEMOGLOBIN ABNORMAL
     Dosage: UNK
     Route: 048
  8. GALVUS [Suspect]
     Active Substance: VILDAGLIPTIN
     Indication: DIABETES MELLITUS
     Dosage: 50 MG
     Route: 048
  9. ONBREZ [Suspect]
     Active Substance: INDACATEROL
     Indication: CHRONIC OBSTRUCTIVE PULMONARY DISEASE
     Dosage: 150 UG, DAILY
     Route: 055
     Dates: start: 20140324, end: 20140504
  10. MACRODANTIN [Concomitant]
     Active Substance: NITROFURANTOIN
     Indication: ESCHERICHIA INFECTION
     Dosage: 100 MG, UNK
     Route: 048
  11. ONBREZ [Suspect]
     Active Substance: INDACATEROL
     Dosage: 150 UG, DAILY
     Route: 055
     Dates: start: 201405, end: 201406
  12. NORVASC [Concomitant]
     Active Substance: AMLODIPINE BESYLATE
     Indication: HYPERTENSION
     Dosage: UNK
     Route: 048
     Dates: end: 201405
  13. CENTRUM [Concomitant]
     Active Substance: VITAMINS
     Indication: VITAMIN SUPPLEMENTATION
     Dosage: UNK
     Route: 048
     Dates: start: 201405
  14. PENTOXIFYLLINE. [Concomitant]
     Active Substance: PENTOXIFYLLINE
     Indication: CARDIOVASCULAR DISORDER
     Dosage: UNK (SINCE LONG TIME AGO )
     Route: 048
  15. NEBILET [Concomitant]
     Active Substance: NEBIVOLOL
     Indication: HYPERTENSION
     Dosage: 5 MG, DAILY
     Route: 048
  16. ENTEROGERMINA [Concomitant]
     Active Substance: BACILLUS SUBTILIS
     Indication: ESCHERICHIA INFECTION
     Dosage: UNK
     Route: 048
  17. GLUCOFAGE [Concomitant]
     Indication: DIABETES MELLITUS
     Dosage: 850 MG
     Route: 048

REACTIONS (2)
  - Urinary tract infection [Recovered/Resolved]
  - Lung infection [Recovered/Resolved]

NARRATIVE: CASE EVENT DATE: 20140504
